FAERS Safety Report 24539589 (Version 2)
Quarter: 2024Q4

REPORT INFORMATION
  Report Type: Report from Study
  Country: GB (occurrence: GB)
  Receive Date: 20241023
  Receipt Date: 20241029
  Transmission Date: 20250115
  Serious: Yes (Hospitalization, Other)
  Sender: NOVARTIS
  Company Number: GB-002147023-NVSC2024GB203553

PATIENT
  Age: 9 Year
  Sex: Male
  Weight: 51.5 kg

DRUGS (17)
  1. MEKINIST [Suspect]
     Active Substance: TRAMETINIB DIMETHYL SULFOXIDE
     Indication: Astrocytoma
     Dosage: 1 MG, QD
     Route: 048
     Dates: start: 20180202
  2. MEKINIST [Suspect]
     Active Substance: TRAMETINIB DIMETHYL SULFOXIDE
     Indication: Optic glioma
     Dosage: 1 MG, QD
     Route: 048
     Dates: start: 20210115
  3. MEKINIST [Suspect]
     Active Substance: TRAMETINIB DIMETHYL SULFOXIDE
     Dosage: 1 MG, QD
     Route: 048
     Dates: start: 20210202, end: 20211018
  4. MEKINIST [Suspect]
     Active Substance: TRAMETINIB DIMETHYL SULFOXIDE
     Dosage: 1.5 MG
     Route: 048
     Dates: start: 20210202, end: 20240507
  5. MEKINIST [Suspect]
     Active Substance: TRAMETINIB DIMETHYL SULFOXIDE
     Dosage: 1.5 MG, QD ( STRENGTH: 1.5MG, PEDIATRIC DOSE 38-50 KG)
     Route: 048
     Dates: start: 20210501
  6. MEKINIST [Suspect]
     Active Substance: TRAMETINIB DIMETHYL SULFOXIDE
     Dosage: 1 MG
     Route: 048
     Dates: end: 20220107
  7. MEKINIST [Suspect]
     Active Substance: TRAMETINIB DIMETHYL SULFOXIDE
     Dosage: 1 MG, QD
     Route: 048
     Dates: start: 20220111, end: 20221116
  8. MEKINIST [Suspect]
     Active Substance: TRAMETINIB DIMETHYL SULFOXIDE
     Dosage: 1 MG/1.5 MG ALTERNATING DAY (AVERAGE DOSE 1.25 MG/DAY)
     Route: 048
     Dates: end: 20230330
  9. MEKINIST [Suspect]
     Active Substance: TRAMETINIB DIMETHYL SULFOXIDE
     Dosage: 1 MG/1.5 MG ALTERNATING DAY (AVERAGE DOSE 1.25 MG/DAY)
     Route: 048
     Dates: start: 20230412, end: 20230527
  10. MEKINIST [Suspect]
     Active Substance: TRAMETINIB DIMETHYL SULFOXIDE
     Dosage: 1.5 MG
     Route: 048
     Dates: start: 20230717
  11. MEKINIST [Suspect]
     Active Substance: TRAMETINIB DIMETHYL SULFOXIDE
     Dosage: 1.5 MG, QD
     Route: 048
     Dates: end: 20241012
  12. MEKINIST [Suspect]
     Active Substance: TRAMETINIB DIMETHYL SULFOXIDE
     Dosage: UNK
     Route: 048
     Dates: start: 20241017
  13. FLUCLOXACILLIN [Suspect]
     Active Substance: FLUCLOXACILLIN
     Indication: Localised infection
     Dosage: 250 MG, QD
     Route: 065
     Dates: start: 20210929, end: 20211001
  14. FLUCLOXACILLIN [Suspect]
     Active Substance: FLUCLOXACILLIN
     Indication: Cellulitis
  15. HYDROCORTISONE [Concomitant]
     Active Substance: HYDROCORTISONE
     Indication: Eczema
     Dosage: UNK (CREAM, STRENGTH: 1%)
     Route: 065
  16. DERMAL [Concomitant]
     Indication: Product used for unknown indication
     Dosage: UNK
     Route: 065
  17. AMOXICILLIN\CLAVULANATE POTASSIUM [Concomitant]
     Active Substance: AMOXICILLIN\CLAVULANATE POTASSIUM
     Indication: Product used for unknown indication
     Dosage: 250/62 MG TDS FOR 5 DAYS
     Route: 065

REACTIONS (38)
  - Cellulitis [Recovering/Resolving]
  - Erythema [Unknown]
  - Paronychia [Unknown]
  - Rash vesicular [Recovered/Resolved]
  - Pruritus [Unknown]
  - Staphylococcal infection [Recovering/Resolving]
  - Bacterial infection [Unknown]
  - Faecaloma [Unknown]
  - Abdominal pain [Unknown]
  - Anal incontinence [Unknown]
  - Diarrhoea [Recovered/Resolved]
  - Constipation [Unknown]
  - Varicella [Recovered/Resolved]
  - Rash vesicular [Recovered/Resolved]
  - Pyrexia [Recovered/Resolved]
  - Cellulitis [Recovered/Resolved]
  - Tenderness [Unknown]
  - Feeling hot [Unknown]
  - Body temperature increased [Unknown]
  - Peripheral swelling [Unknown]
  - Pyrexia [Recovered/Resolved]
  - Tonsillitis [Recovered/Resolved]
  - Pyrexia [Recovered/Resolved]
  - Cough [Unknown]
  - Oropharyngeal pain [Unknown]
  - Oral herpes [Unknown]
  - Oral disorder [Unknown]
  - Conjunctivitis [Recovered/Resolved]
  - Eye pruritus [Unknown]
  - Eye inflammation [Unknown]
  - Enterocolitis infectious [Recovered/Resolved]
  - Diarrhoea [Recovering/Resolving]
  - Vomiting [Recovering/Resolving]
  - Pyrexia [Recovered/Resolved]
  - Acute kidney injury [Recovered/Resolved]
  - Neutrophil count increased [Unknown]
  - Blood creatinine increased [Unknown]
  - C-reactive protein increased [Unknown]

NARRATIVE: CASE EVENT DATE: 20210930
